FAERS Safety Report 10516615 (Version 1)
Quarter: 2014Q4

REPORT INFORMATION
  Report Type: Spontaneous
  Country: US (occurrence: US)
  Receive Date: 20141014
  Receipt Date: 20141014
  Transmission Date: 20150528
  Serious: No
  Sender: FDA-Public Use
  Company Number: US-TARO-2014P1003301

PATIENT
  Age: 9 Year
  Sex: Male
  Weight: 40.82 kg

DRUGS (2)
  1. LORATADINE SYRUP (LORATADINE ORAL SOLUTION USP) 5MG/5ML [Suspect]
     Active Substance: LORATADINE
     Indication: HYPERSENSITIVITY
     Route: 048
     Dates: start: 2010, end: 20140413
  2. ALBUTEROL NEBULIZER [Concomitant]
     Active Substance: ALBUTEROL
     Dosage: PRN

REACTIONS (2)
  - Vomiting [Recovered/Resolved]
  - Product substitution issue [Recovered/Resolved]

NARRATIVE: CASE EVENT DATE: 20140413
